FAERS Safety Report 19821480 (Version 1)
Quarter: 2021Q3

REPORT INFORMATION
  Report Type: Spontaneous
  Country: US (occurrence: US)
  Receive Date: 20210913
  Receipt Date: 20210913
  Transmission Date: 20211014
  Serious: Yes (Other)
  Sender: FDA-Public Use
  Company Number: US-BAYER-2021-208367

PATIENT
  Age: 47 Year
  Sex: Female

DRUGS (2)
  1. NA [Concomitant]
     Active Substance: SODIUM
     Dosage: UNK
  2. CIPRO [Suspect]
     Active Substance: CIPROFLOXACIN HYDROCHLORIDE
     Indication: URINARY TRACT INFECTION
     Dosage: 500 MG
     Dates: start: 20180914, end: 20180921

REACTIONS (3)
  - Tendon rupture [Not Recovered/Not Resolved]
  - Nerve injury [Not Recovered/Not Resolved]
  - Tendon operation [Not Recovered/Not Resolved]
